FAERS Safety Report 8109699-X (Version None)
Quarter: 2012Q1

REPORT INFORMATION
  Report Type: 
  Country: None (occurrence: None)
  Receive Date: 20120202
  Receipt Date: 20120118
  Transmission Date: 20120608
  Serious: No
  Sender: FDA-Public Use
  Company Number: US-AMGEN-USASP2012001354

PATIENT
  Age: 54 Year
  Sex: Male

DRUGS (2)
  1. ENBREL [Suspect]
     Indication: RHEUMATOID ARTHRITIS
  2. ENBREL [Suspect]
     Indication: PSORIASIS
     Dosage: 50 MG, Q2WK
     Route: 058
     Dates: start: 20050101

REACTIONS (5)
  - MUSCULAR WEAKNESS [None]
  - FATIGUE [None]
  - INCREASED APPETITE [None]
  - BACK PAIN [None]
  - MUSCULOSKELETAL PAIN [None]
